FAERS Safety Report 9029656 (Version 2)
Quarter: 2013Q1

REPORT INFORMATION
  Report Type: Spontaneous
  Country: BR (occurrence: BR)
  Receive Date: 20130125
  Receipt Date: 20130225
  Transmission Date: 20140127
  Serious: Yes (Hospitalization, Other)
  Sender: FDA-Public Use
  Company Number: PHHY2013BR006699

PATIENT
  Age: 64 Year
  Sex: Female

DRUGS (4)
  1. DIOVAN HCT [Suspect]
     Indication: HYPERTENSION
     Dosage: 1 DF, (320 MG VALS/ 12,5 MG HYDRO) PER DAY
     Route: 048
  2. GLIFAGE [Concomitant]
     Indication: DIABETES MELLITUS
     Dosage: 3 DF(850 MG), DAILY
     Route: 048
  3. GLIMEPIRIDE [Concomitant]
     Indication: DIABETES MELLITUS
     Dosage: 3 DF(2 MG), DAILY (12 TABLETES AT LUNCH AND 1 TABLET AT DINNER)
  4. A.A.S. [Concomitant]
     Indication: ANTICOAGULANT THERAPY
     Dosage: 3 DF(100 MG), DAILY
     Route: 048

REACTIONS (1)
  - Infarction [Recovered/Resolved]
